FAERS Safety Report 9889350 (Version 2)
Quarter: 2014Q1

REPORT INFORMATION
  Report Type: Spontaneous
  Country: JP (occurrence: JP)
  Receive Date: 20140211
  Receipt Date: 20140228
  Transmission Date: 20141002
  Serious: Yes (Other)
  Sender: FDA-Public Use
  Company Number: JP-ABBVIE-14P-087-1196074-00

PATIENT
  Age: 38 Year
  Sex: Female
  Weight: 56 kg

DRUGS (1)
  1. LEUPLIN [Suspect]
     Indication: UTERINE LEIOMYOMA
     Route: 058
     Dates: start: 20120921, end: 20120921

REACTIONS (1)
  - Ovarian hyperstimulation syndrome [Recovered/Resolved]
